FAERS Safety Report 12297947 (Version 3)
Quarter: 2016Q3

REPORT INFORMATION
  Report Type: Spontaneous
  Country: US (occurrence: US)
  Receive Date: 20160422
  Receipt Date: 20160705
  Transmission Date: 20161109
  Serious: No
  Sender: FDA-Public Use
  Company Number: US-PFIZER INC-2016221837

PATIENT
  Age: 41 Year
  Sex: Female

DRUGS (1)
  1. XELJANZ [Suspect]
     Active Substance: TOFACITINIB CITRATE
     Indication: RHEUMATOID ARTHRITIS
     Dosage: UNK

REACTIONS (7)
  - Arthralgia [Recovering/Resolving]
  - Fatigue [Unknown]
  - Musculoskeletal pain [Recovering/Resolving]
  - Paraesthesia [Unknown]
  - Pain in extremity [Recovering/Resolving]
  - Neck pain [Recovering/Resolving]
  - Muscular weakness [Unknown]
